FAERS Safety Report 5279255-X (Version None)
Quarter: 2007Q1

REPORT INFORMATION
  Report Type: 
  Country: None (occurrence: None)
  Receive Date: 20070322
  Receipt Date: 20070307
  Transmission Date: 20070707
  Serious: Yes (Other)
  Sender: FDA-Public Use
  Company Number: 2007000504

PATIENT

DRUGS (1)
  1. MACUGEN [Suspect]
     Dosage: UNK, INTRA-VITREAL

REACTIONS (1)
  - RETINAL HAEMORRHAGE [None]
